FAERS Safety Report 15144405 (Version 1)
Quarter: 2018Q3

REPORT INFORMATION
  Report Type: Spontaneous
  Country: US (occurrence: US)
  Receive Date: 20180713
  Receipt Date: 20180713
  Transmission Date: 20181010
  Serious: No
  Sender: FDA-Public Use
  Company Number: US-PERRIGO-18US004958

PATIENT
  Age: 77 Year
  Sex: Female
  Weight: 74.83 kg

DRUGS (1)
  1. MINOXIDIL. [Suspect]
     Active Substance: MINOXIDIL
     Indication: ALOPECIA
     Dosage: 1.5 ML, BID
     Route: 061
     Dates: start: 201712

REACTIONS (3)
  - Application site pruritus [Unknown]
  - Off label use [Unknown]
  - Application site dryness [Unknown]

NARRATIVE: CASE EVENT DATE: 201712
